FAERS Safety Report 25899734 (Version 2)
Quarter: 2025Q4

REPORT INFORMATION
  Report Type: Report from Study
  Country: US (occurrence: US)
  Receive Date: 20251009
  Receipt Date: 20251015
  Transmission Date: 20260118
  Serious: Yes (Hospitalization, Other)
  Sender: JOHNSON AND JOHNSON
  Company Number: US-JNJFOC-20251002578

PATIENT
  Age: 70 Year
  Sex: Male
  Weight: 88.45 kg

DRUGS (7)
  1. SPRAVATO [Suspect]
     Active Substance: ESKETAMINE
     Indication: Depression
     Dosage: ^^84 MG, 9 TOTAL DOSES^^
     Route: 045
     Dates: start: 20241118, end: 20250108
  2. SPRAVATO [Suspect]
     Active Substance: ESKETAMINE
     Dosage: ^84 MG, 1 TOTAL DOSE^
     Route: 045
     Dates: start: 20251008
  3. REXULTI [Concomitant]
     Active Substance: BREXPIPRAZOLE
     Indication: Affective disorder
     Route: 048
  4. QUETIAPINE [Concomitant]
     Active Substance: QUETIAPINE
     Indication: Affective disorder
     Route: 048
  5. LAMOTRIGINE [Concomitant]
     Active Substance: LAMOTRIGINE
     Indication: Affective disorder
     Route: 048
  6. TRIAZOLAM [Concomitant]
     Active Substance: TRIAZOLAM
     Indication: Sleep disorder
     Route: 048
  7. ACAMPROSATE [Concomitant]
     Active Substance: ACAMPROSATE
     Indication: Alcohol use disorder
     Route: 048

REACTIONS (6)
  - Suicidal ideation [Unknown]
  - Depression [Unknown]
  - Bipolar II disorder [Unknown]
  - Alcoholism [Unknown]
  - Memory impairment [Unknown]
  - Confusional state [Unknown]
